FAERS Safety Report 10975595 (Version 1)
Quarter: 2015Q2

REPORT INFORMATION
  Report Type: Spontaneous
  Country: IT (occurrence: IT)
  Receive Date: 20150401
  Receipt Date: 20150401
  Transmission Date: 20150821
  Serious: Yes (Hospitalization)
  Sender: FDA-Public Use
  Company Number: IT-BAYER-2015-073190

PATIENT
  Age: 61 Year
  Sex: Male

DRUGS (4)
  1. CARDIOASPIRIN [Suspect]
     Active Substance: ASPIRIN
     Indication: THROMBOSIS PROPHYLAXIS
     Dosage: DAILY DOSE 100 MG
     Route: 048
     Dates: start: 20140101, end: 20150206
  2. GLUCOPHAGE [Concomitant]
     Active Substance: METFORMIN HYDROCHLORIDE
     Dosage: UNK
     Route: 048
     Dates: start: 20140101, end: 20150206
  3. ZESTRIL [Concomitant]
     Active Substance: LISINOPRIL
     Dosage: UNK
     Route: 048
     Dates: start: 20140101, end: 20150206
  4. AULIN [Suspect]
     Active Substance: NIMESULIDE
     Indication: PAIN
     Dosage: DAILY DOSE 100 MG
     Route: 048
     Dates: start: 20150203, end: 20150206

REACTIONS (5)
  - Dizziness [Unknown]
  - Dyspnoea [Unknown]
  - Faeces discoloured [Unknown]
  - Melaena [Unknown]
  - Nausea [Unknown]

NARRATIVE: CASE EVENT DATE: 20150206
